FAERS Safety Report 23215932 (Version 1)
Quarter: 2023Q4

REPORT INFORMATION
  Report Type: Report from Study
  Country: CA (occurrence: CA)
  Receive Date: 20231122
  Receipt Date: 20231122
  Transmission Date: 20240110
  Serious: Yes (Hospitalization, Other)
  Sender: FDA-Public Use
  Company Number: CA-ABBVIE-5499811

PATIENT
  Sex: Female

DRUGS (1)
  1. SKYRIZI [Suspect]
     Active Substance: RISANKIZUMAB-RZAA
     Indication: Psoriasis
     Route: 058
     Dates: start: 20230502

REACTIONS (8)
  - Respiratory tract infection viral [Unknown]
  - Pleuritic pain [Recovering/Resolving]
  - Dyspnoea [Not Recovered/Not Resolved]
  - Angina unstable [Unknown]
  - Fatigue [Unknown]
  - Pulmonary embolism [Not Recovered/Not Resolved]
  - Loss of personal independence in daily activities [Unknown]
  - Cardiac failure [Unknown]

NARRATIVE: CASE EVENT DATE: 20230101
